FAERS Safety Report 9198167 (Version 2)
Quarter: 2013Q3

REPORT INFORMATION
  Report Type: Spontaneous
  Country: US (occurrence: US)
  Receive Date: 20130329
  Receipt Date: 20130719
  Transmission Date: 20140515
  Serious: Yes (Hospitalization)
  Sender: FDA-Public Use
  Company Number: US-BIOGENIDEC-2013BI028628

PATIENT
  Age: 54 Year
  Sex: Female

DRUGS (3)
  1. TYSABRI [Suspect]
     Indication: MULTIPLE SCLEROSIS
     Route: 042
     Dates: start: 20121120, end: 201212
  2. IMMUNOGLOBULINS [Concomitant]
     Indication: LANGERHANS^ CELL HISTIOCYTOSIS
     Route: 042
  3. LOVENOX [Concomitant]
     Indication: THROMBOSIS PROPHYLAXIS
     Dates: start: 201302, end: 201302

REACTIONS (8)
  - Dyspnoea [Recovered/Resolved]
  - Bladder pain [Recovered/Resolved]
  - Back pain [Recovered/Resolved]
  - Diarrhoea [Recovered/Resolved]
  - Cystitis [Recovered/Resolved]
  - Kidney infection [Recovered/Resolved]
  - Chronic obstructive pulmonary disease [Recovered/Resolved]
  - Clostridium difficile infection [Recovered/Resolved]
